FAERS Safety Report 9007252 (Version 1)
Quarter: 2013Q1

REPORT INFORMATION
  Report Type: Spontaneous
  Country: CA (occurrence: CA)
  Receive Date: 20130110
  Receipt Date: 20130110
  Transmission Date: 20140127
  Serious: Yes (Hospitalization)
  Sender: FDA-Public Use
  Company Number: CA-B.I. PHARMACEUTICALS,INC./RIDGEFIELD-2013-CN-00009CN

PATIENT
  Age: 50 Year
  Sex: Male
  Weight: 113 kg

DRUGS (8)
  1. PRADAX [Suspect]
     Dosage: 300 MG
     Route: 048
  2. ATORVASTATIN CALCIUM [Concomitant]
  3. AZATHIOPRINE [Concomitant]
  4. IRBESARTAN [Concomitant]
  5. OMEPRAZOLE [Concomitant]
  6. PREDNISONE [Concomitant]
  7. TACROLIMUS [Concomitant]
  8. WARFARIN [Concomitant]

REACTIONS (4)
  - Deep vein thrombosis [Unknown]
  - Drug effect decreased [Unknown]
  - Drug effect increased [Unknown]
  - Pain in extremity [Unknown]
